FAERS Safety Report 7704255-7 (Version None)
Quarter: 2011Q3

REPORT INFORMATION
  Report Type: 
  Country: None (occurrence: None)
  Receive Date: 20110823
  Receipt Date: 20110818
  Transmission Date: 20111222
  Serious: Yes (Hospitalization, Other)
  Sender: FDA-Public Use
  Company Number: TR-JNJFOC-20110802398

PATIENT
  Age: 17 Year
  Sex: Male

DRUGS (12)
  1. INVEGA [Suspect]
     Indication: PSYCHOTIC DISORDER
     Route: 048
     Dates: start: 20110101
  2. INVEGA [Suspect]
     Indication: BIPOLAR DISORDER
     Route: 048
     Dates: start: 20110101
  3. INVEGA [Suspect]
     Route: 048
     Dates: start: 20110726
  4. INVEGA [Suspect]
     Route: 048
     Dates: start: 20110714, end: 20110725
  5. INVEGA [Suspect]
     Route: 048
     Dates: start: 20110714, end: 20110725
  6. INVEGA [Suspect]
     Route: 048
     Dates: start: 20110701, end: 20110701
  7. INVEGA [Suspect]
     Route: 048
     Dates: start: 20110726
  8. INVEGA [Suspect]
     Route: 048
     Dates: start: 20110729, end: 20110729
  9. INVEGA [Suspect]
     Route: 048
     Dates: start: 20110726
  10. INVEGA [Suspect]
     Route: 048
     Dates: start: 20110729, end: 20110729
  11. INVEGA [Suspect]
     Route: 048
     Dates: start: 20110726
  12. INVEGA [Suspect]
     Route: 048
     Dates: start: 20110701, end: 20110701

REACTIONS (5)
  - INTENTIONAL OVERDOSE [None]
  - SUICIDE ATTEMPT [None]
  - ACCIDENTAL OVERDOSE [None]
  - RESTLESSNESS [None]
  - AGITATION [None]
